FAERS Safety Report 7718364-X (Version None)
Quarter: 2011Q3

REPORT INFORMATION
  Report Type: 
  Country: None (occurrence: None)
  Receive Date: 20110830
  Receipt Date: 20110825
  Transmission Date: 20111222
  Serious: Yes (Death, Hospitalization, Other)
  Sender: FDA-Public Use
  Company Number: PHHY2011CL66582

PATIENT
  Sex: Male

DRUGS (2)
  1. GLEEVEC [Suspect]
     Dosage: 300 MG, DAILY
     Dates: start: 20060101
  2. NILOTINIB [Concomitant]
     Dosage: UNK UKN, UNK

REACTIONS (2)
  - DEATH [None]
  - BLAST CELL CRISIS [None]
